FAERS Safety Report 8227331-1 (Version None)
Quarter: 2012Q1

REPORT INFORMATION
  Report Type: 
  Country: None (occurrence: None)
  Receive Date: 20120322
  Receipt Date: 20120321
  Transmission Date: 20120608
  Serious: Yes (Death, Other)
  Sender: FDA-Public Use
  Company Number: PHHY2011NL39279

PATIENT
  Sex: Male

DRUGS (8)
  1. ZOMETA [Suspect]
     Indication: PROSTATE CANCER METASTATIC
     Dosage: 4 MG / 5ML INFUSION IN 20 MIN ONCE IN 28 DAYS
     Dates: start: 20090702
  2. ZOMETA [Suspect]
     Dosage: 4 MG / 5ML INFUSION IN 20 MIN ONCE IN 28 DAYS
     Dates: start: 20110505
  3. ZOMETA [Suspect]
     Dosage: 4 MG /100ML ONCE IN 28 DAYS
     Route: 042
     Dates: start: 20111020
  4. ZOMETA [Suspect]
     Dosage: 4 MG /100ML ONCE IN 28 DAYS
     Route: 042
     Dates: start: 20120112
  5. FIRMAGON [Concomitant]
     Dosage: 80 MG, UNK
  6. ZOLADEX [Concomitant]
     Dosage: UNK UKN, UNK
  7. ZOMETA [Suspect]
     Dosage: 4 MG / 5ML INFUSION IN 20 MIN ONCE IN 28 DAYS
     Dates: start: 20110728
  8. ZOMETA [Suspect]
     Dosage: 4 MG / 5ML INFUSION IN 20 MIN ONCE IN 28 DAYS
     Dates: start: 20110210

REACTIONS (6)
  - NEOPLASM PROGRESSION [None]
  - MUSCULOSKELETAL PAIN [None]
  - PROSTATIC SPECIFIC ANTIGEN INCREASED [None]
  - DEATH [None]
  - NEOPLASM MALIGNANT [None]
  - PELVIC PAIN [None]
